FAERS Safety Report 15347333 (Version 1)
Quarter: 2018Q4

REPORT INFORMATION
  Report Type: Spontaneous
  Country: US (occurrence: US)
  Receive Date: 20180904
  Receipt Date: 20180904
  Transmission Date: 20190204
  Serious: No
  Sender: FDA-Public Use
  Company Number: US-SA-2018SA244464

PATIENT
  Sex: Female

DRUGS (1)
  1. CORTIZONE 10 INTENSIVE HEALING [Suspect]
     Active Substance: HYDROCORTISONE
     Indication: PRURITUS

REACTIONS (1)
  - Drug ineffective [Unknown]
